FAERS Safety Report 10837651 (Version 1)
Quarter: 2015Q1

REPORT INFORMATION
  Report Type: Spontaneous
  Country: JP (occurrence: None)
  Receive Date: 20150218
  Receipt Date: 20150218
  Transmission Date: 20150721
  Serious: Yes (Hospitalization)
  Sender: FDA-Public Use
  Company Number: JP-ZYDUS-006671

PATIENT
  Age: 76 Year
  Sex: Male

DRUGS (4)
  1. CABERGOLINE (CABERGOLINE) [Suspect]
     Active Substance: CABERGOLINE
     Indication: PARKINSON^S DISEASE
     Dates: start: 200805
  2. AMANTADINE (AMANTADINE) (AMANTADINE) [Suspect]
     Active Substance: AMANTADINE
     Indication: PARKINSON^S DISEASE
     Dates: start: 200805
  3. PRAMIPEXOLE (PRAMIPEXOLE) [Suspect]
     Active Substance: PRAMIPEXOLE
     Dates: end: 200902
  4. LEVODOPA (LEVODOPA) [Suspect]
     Active Substance: LEVODOPA
     Indication: PARKINSON^S DISEASE
     Dates: start: 200805

REACTIONS (2)
  - Drug effect decreased [None]
  - Hallucination, tactile [None]

NARRATIVE: CASE EVENT DATE: 200810
